FAERS Safety Report 10088978 (Version 4)
Quarter: 2014Q3

REPORT INFORMATION
  Report Type: Report from Study
  Country: US (occurrence: US)
  Receive Date: 20140421
  Receipt Date: 20140718
  Transmission Date: 20150326
  Serious: Yes (Hospitalization, Disabling)
  Sender: FDA-Public Use
  Company Number: US-JNJFOC-20140311973

PATIENT
  Age: 64 Year
  Sex: Female
  Weight: 83.46 kg

DRUGS (6)
  1. ZYRTEC [Concomitant]
     Active Substance: CETIRIZINE HYDROCHLORIDE
     Indication: MULTIPLE ALLERGIES
     Route: 065
  2. USTEKINUMAB [Suspect]
     Active Substance: USTEKINUMAB
     Indication: PSORIASIS
     Route: 058
     Dates: start: 20120103, end: 20131119
  3. FLONASE [Concomitant]
     Active Substance: FLUTICASONE PROPIONATE
     Indication: MULTIPLE ALLERGIES
     Route: 065
  4. USTEKINUMAB [Suspect]
     Active Substance: USTEKINUMAB
     Indication: PSORIASIS
     Route: 058
     Dates: start: 20100110, end: 20110712
  5. NEXIUM [Concomitant]
     Active Substance: ESOMEPRAZOLE MAGNESIUM
     Indication: GASTROOESOPHAGEAL REFLUX DISEASE
     Route: 065
  6. MUCINEX [Concomitant]
     Active Substance: GUAIFENESIN
     Indication: SINUS DISORDER
     Route: 065

REACTIONS (1)
  - Chronic obstructive pulmonary disease [Recovered/Resolved with Sequelae]

NARRATIVE: CASE EVENT DATE: 20131002
